FAERS Safety Report 4394801-6 (Version None)
Quarter: 2004Q3

REPORT INFORMATION
  Report Type: 
  Country: None (occurrence: None)
  Receive Date: 20040706
  Receipt Date: 20040628
  Transmission Date: 20050211
  Serious: Yes (Hospitalization)
  Sender: FDA-Public Use
  Company Number: 2004-06-2012

PATIENT
  Age: 83 Year
  Sex: Female

DRUGS (2)
  1. NAQUA [Suspect]
     Indication: HYPERTENSION
     Dosage: 2 MG QD ORAL
     Route: 048
     Dates: start: 20030501, end: 20030710
  2. ALFAROL ORAL, NOT OTHERWISE SPECIFIED [Suspect]
     Indication: OSTEOPOROSIS
     Dosage: 1 MCG QD PO
     Route: 048
     Dates: start: 19900101, end: 20030710

REACTIONS (6)
  - DECREASED APPETITE [None]
  - DEHYDRATION [None]
  - HYPERCALCAEMIA [None]
  - INTESTINAL HYPOMOTILITY [None]
  - MALAISE [None]
  - MUSCULAR WEAKNESS [None]
